FAERS Safety Report 7360279-3 (Version None)
Quarter: 2011Q1

REPORT INFORMATION
  Report Type: 
  Country: None (occurrence: None)
  Receive Date: 20110318
  Receipt Date: 20110308
  Transmission Date: 20110831
  Serious: Yes (Other)
  Sender: FDA-Public Use
  Company Number: US-CELGENEUS-163-20785-11031067

PATIENT
  Sex: Female
  Weight: 108.51 kg

DRUGS (18)
  1. SAVELLA [Concomitant]
     Indication: FIBROMYALGIA
     Dosage: 50 MILLIGRAM
     Route: 065
  2. SEROQUEL [Concomitant]
     Indication: INSOMNIA
     Dosage: 50 MILLIGRAM
     Route: 065
  3. VITAMIN E [Concomitant]
     Dosage: 400 IU (INTERNATIONAL UNIT)
     Route: 065
  4. PREDNISONE TAB [Concomitant]
     Indication: MYELOFIBROSIS
     Dosage: 10 MILLIGRAM
     Route: 065
  5. MIRAPEX [Concomitant]
     Dosage: 5 MILLIGRAM
     Route: 065
  6. CELEBREX [Concomitant]
     Indication: ARTHRITIS
     Dosage: 200 MILLIGRAM
     Route: 065
  7. ASPIRIN [Concomitant]
     Dosage: 81 MILLIGRAM
     Route: 065
  8. THALOMID [Suspect]
     Indication: MYELOFIBROSIS
     Dosage: 50 MILLIGRAM
     Route: 048
     Dates: start: 20100801
  9. LYRICA [Concomitant]
     Indication: DEPRESSION
     Dosage: 50 MILLIGRAM
     Route: 065
  10. XANAX [Concomitant]
     Indication: FIBROMYALGIA
     Dosage: 1 MILLIGRAM
     Route: 065
  11. STRATTERA [Concomitant]
     Dosage: 40 MILLIGRAM
     Route: 065
  12. BUSPAR [Concomitant]
     Indication: ANXIETY
     Dosage: 15 MILLIGRAM
     Route: 065
  13. CALCIUM [Concomitant]
     Dosage: 600 MILLIGRAM
     Route: 065
  14. SYNTHROID [Concomitant]
     Indication: HYPOTHYROIDISM
     Dosage: 112 MICROGRAM
     Route: 065
  15. SKELAXIN [Concomitant]
     Indication: FIBROMYALGIA
     Dosage: 800 MILLIGRAM
     Route: 065
  16. PROZAC [Concomitant]
     Indication: DEPRESSION
     Dosage: 20 MILLIGRAM
     Route: 065
  17. OXYCONTIN [Concomitant]
     Dosage: 20 MILLIGRAM
     Route: 065
  18. OXYCODONE HCL [Concomitant]
     Indication: BONE PAIN
     Dosage: 5 MILLIGRAM
     Route: 065

REACTIONS (3)
  - SPLENOMEGALY [None]
  - OEDEMA PERIPHERAL [None]
  - DYSPNOEA [None]
